FAERS Safety Report 8140435-7 (Version None)
Quarter: 2012Q1

REPORT INFORMATION
  Report Type: 
  Country: None (occurrence: None)
  Receive Date: 20120216
  Receipt Date: 20120208
  Transmission Date: 20120608
  Serious: Yes (Hospitalization, Other)
  Sender: FDA-Public Use
  Company Number: US-CELGENEUS-163-21880-11040492

PATIENT
  Sex: Male

DRUGS (5)
  1. DEXAMETHASONE [Concomitant]
     Dosage: 4 MILLIGRAM
     Route: 065
     Dates: start: 20110203
  2. ZOMETA [Suspect]
     Route: 065
  3. PERCOCET [Concomitant]
     Route: 065
  4. COUMADIN [Concomitant]
     Route: 065
  5. REVLIMID [Suspect]
     Indication: MULTIPLE MYELOMA
     Dosage: 25 MILLIGRAM
     Route: 048
     Dates: start: 20110203, end: 20110601

REACTIONS (2)
  - PULMONARY EMBOLISM [None]
  - OSTEONECROSIS OF JAW [None]
